FAERS Safety Report 7004681-8 (Version None)
Quarter: 2010Q3

REPORT INFORMATION
  Report Type: 
  Country: None (occurrence: None)
  Receive Date: 20100902
  Receipt Date: 20100429
  Transmission Date: 20110219
  Serious: Yes (Hospitalization, Disabling, Other)
  Sender: FDA-Public Use
  Company Number: 232617USA

PATIENT
  Sex: Female

DRUGS (1)
  1. METOCLOPRAMIDE [Suspect]
     Indication: GASTROINTESTINAL DISORDER
     Dosage: 4X/DAY INCREASED TO 10MG 4X/DAY (5 MG)
     Dates: start: 20060801, end: 20090209

REACTIONS (3)
  - DYSKINESIA [None]
  - GINGIVAL PAIN [None]
  - HYPOAESTHESIA [None]
